FAERS Safety Report 8821110 (Version 1)
Quarter: 2012Q4

REPORT INFORMATION
  Report Type: 
  Country: JP (occurrence: JP)
  Receive Date: 20121002
  Receipt Date: 20121002
  Transmission Date: 20130627
  Serious: Yes (Death)
  Sender: FDA-Public Use
  Company Number: JP-GLAXOSMITHKLINE-B0831467A

PATIENT
  Age: 84 Year
  Sex: Female

DRUGS (2)
  1. PAXIL [Suspect]
     Indication: DEPRESSION
     Dosage: 12.5MG Per day
     Route: 048
     Dates: start: 20120719, end: 20120913
  2. WARFARIN [Concomitant]
     Route: 048

REACTIONS (2)
  - Myocardial infarction [Fatal]
  - Platelet count decreased [Fatal]
